FAERS Safety Report 6426800-4 (Version None)
Quarter: 2009Q4

REPORT INFORMATION
  Report Type: 
  Country: None (occurrence: None)
  Receive Date: 20091030
  Receipt Date: 20091016
  Transmission Date: 20100525
  Serious: Yes (Hospitalization)
  Sender: FDA-Public Use
  Company Number: 2009AC000091

PATIENT
  Age: 37 Year
  Sex: Female
  Weight: 98.8842 kg

DRUGS (33)
  1. DIGOXIN [Suspect]
     Dosage: 0.125 MG; QD; PO
     Route: 048
  2. ICAR-C [Concomitant]
  3. LEVOTHYROXINE SODIUM [Concomitant]
  4. VERAPAMIL [Concomitant]
  5. METRONIDAZOL [Concomitant]
  6. AMOXICILLIN [Concomitant]
  7. MECLIZINE [Concomitant]
  8. METHYLPRED [Concomitant]
  9. TRAZODONE HCL [Concomitant]
  10. MEDROXYPR AC [Concomitant]
  11. CEPHALEXIN [Concomitant]
  12. FLUCONAZOLE [Concomitant]
  13. NYSTAT/TRIAM [Concomitant]
  14. COTRIM [Concomitant]
  15. BETHANECHOL [Concomitant]
  16. DOXYCYCL HYC [Concomitant]
  17. POLY-VENT [Concomitant]
  18. CPM/PSE [Concomitant]
  19. PROMETHEGAN [Concomitant]
  20. KETOCONAZOLE [Concomitant]
  21. MUPIROCIN [Concomitant]
  22. RIFAMPIN [Concomitant]
  23. TRIAMCINOLONE [Concomitant]
  24. TRAZODONE HCL [Concomitant]
  25. LEVOTHYROXINE SODIUM [Concomitant]
  26. AVELOX [Concomitant]
  27. CIPROFLOXACIN [Concomitant]
  28. POLY HIST [Concomitant]
  29. METOPROLOL TARTRATE [Concomitant]
  30. TOPROL-XL [Concomitant]
  31. SYNTHROID [Concomitant]
  32. PROPRANOLOL [Concomitant]
  33. MULTI-VITAMIN [Concomitant]

REACTIONS (9)
  - ANAEMIA [None]
  - ANXIETY [None]
  - CHEST DISCOMFORT [None]
  - HYPOTHYROIDISM [None]
  - MULTIPLE INJURIES [None]
  - PAIN [None]
  - RESPIRATORY TRACT INFECTION [None]
  - SUPRAVENTRICULAR TACHYCARDIA [None]
  - SWELLING [None]
